FAERS Safety Report 9555681 (Version 1)
Quarter: 2013Q3

REPORT INFORMATION
  Report Type: Spontaneous
  Country: FR (occurrence: FR)
  Receive Date: 20130926
  Receipt Date: 20130926
  Transmission Date: 20140515
  Serious: Yes (Life-Threatening)
  Sender: FDA-Public Use
  Company Number: PHHY2013FR107009

PATIENT
  Age: 79 Year
  Sex: Female

DRUGS (11)
  1. COTAREG [Suspect]
     Indication: HYPERTENSION
     Dosage: 1 DF (160MG VALS, 12.5MG HCTZ), QD
     Route: 048
  2. AMAREL [Suspect]
     Indication: TYPE 2 DIABETES MELLITUS
     Dosage: 1 MG, BID
     Route: 048
  3. PROFENID [Suspect]
     Indication: SCIATICA
     Dosage: 100 MG, QD
     Route: 048
     Dates: start: 20130730, end: 20130805
  4. MIOREL [Suspect]
     Indication: SCIATICA
     Dosage: 4 MG, BID
     Route: 048
     Dates: start: 20130730, end: 20130805
  5. KLIPAL CODEINE [Suspect]
     Indication: SCIATICA
     Dosage: 1 DF (600MG PARA/ 50MG CODE), QID
     Dates: start: 20130730, end: 20130805
  6. LIPANTHYL [Concomitant]
     Indication: DYSLIPIDAEMIA
     Dosage: 145 MG, QD
     Route: 048
  7. LOXEN [Concomitant]
     Indication: HYPERTENSION
     Dosage: 20 MG, QD
     Route: 048
  8. DAFLON (DIOSMIN/HESPERIDIN) [Concomitant]
     Indication: VENOUS INSUFFICIENCY
     Dosage: 500 MG, BID
     Route: 048
  9. TOPALGIC [Concomitant]
     Indication: PAIN
     Dosage: 50 MG, BID
  10. RIVOTRIL [Concomitant]
     Dosage: 1 MG, UNK
  11. NARCAN [Concomitant]
     Dosage: 0.2 MG, UNK

REACTIONS (3)
  - Hypoglycaemic coma [Recovered/Resolved with Sequelae]
  - Diarrhoea [Recovered/Resolved]
  - Renal failure acute [Recovered/Resolved]
